FAERS Safety Report 4612249-3 (Version None)
Quarter: 2005Q1

REPORT INFORMATION
  Report Type: 
  Country: None (occurrence: None)
  Receive Date: 20050316
  Receipt Date: 20050228
  Transmission Date: 20050727
  Serious: Yes (Hospitalization)
  Sender: FDA-Public Use
  Company Number: USA050291951

PATIENT
  Age: 7 Year
  Sex: Male

DRUGS (3)
  1. STRATTERA [Suspect]
     Indication: ATTENTION DEFICIT/HYPERACTIVITY DISORDER
     Dates: start: 20040101
  2. CLONIDINE [Concomitant]
  3. TRAZODONE HCL [Concomitant]

REACTIONS (2)
  - ANION GAP ABNORMAL [None]
  - HEPATIC FIBROSIS [None]
